FAERS Safety Report 7225069-0 (Version None)
Quarter: 2011Q1

REPORT INFORMATION
  Report Type: 
  Country: None (occurrence: None)
  Receive Date: 20110113
  Receipt Date: 20110106
  Transmission Date: 20110831
  Serious: Yes (Death, Hospitalization)
  Sender: FDA-Public Use
  Company Number: US-JNJFOC-20110101664

PATIENT
  Age: 21 Year
  Sex: Male

DRUGS (6)
  1. AMLODIPINE BESYLATE AND BENAZEPRIL HCL [Concomitant]
     Indication: SUICIDE ATTEMPT
     Route: 048
  2. ACETAMINOPHEN [Suspect]
     Route: 048
  3. BENZODIAZEPINE NOS [Suspect]
     Indication: SUICIDE ATTEMPT
     Route: 048
  4. ACETAMINOPHEN [Suspect]
     Indication: SUICIDE ATTEMPT
     Route: 048
  5. METOPROLOL [Concomitant]
     Indication: SUICIDE ATTEMPT
     Route: 048
  6. CITALOPRAM [Concomitant]
     Indication: SUICIDE ATTEMPT
     Route: 048

REACTIONS (3)
  - SHOCK [None]
  - TOXICITY TO VARIOUS AGENTS [None]
  - ACUTE RESPIRATORY DISTRESS SYNDROME [None]
